FAERS Safety Report 13884220 (Version 2)
Quarter: 2017Q3

REPORT INFORMATION
  Report Type: Spontaneous
  Country: US (occurrence: US)
  Receive Date: 20170821
  Receipt Date: 20170821
  Transmission Date: 20171127
  Serious: No
  Sender: FDA-Public Use
  Company Number: US-ACCORD-052973

PATIENT
  Age: 30 Year
  Sex: Male
  Weight: 63.5 kg

DRUGS (1)
  1. QUETIAPINE ACCORD [Suspect]
     Active Substance: QUETIAPINE
     Indication: SCHIZOAFFECTIVE DISORDER
     Dosage: QUETIAPINE ER, STRENGTH: 400 MG
     Route: 048
     Dates: start: 20170614

REACTIONS (4)
  - Product substitution issue [Unknown]
  - Fatigue [Unknown]
  - Somnolence [Unknown]
  - Dysarthria [Unknown]
